FAERS Safety Report 18417247 (Version 2)
Quarter: 2022Q3

REPORT INFORMATION
  Report Type: Spontaneous
  Country: IT (occurrence: IT)
  Receive Date: 20201022
  Receipt Date: 20220905
  Transmission Date: 20221027
  Serious: Yes (Death, Life-Threatening, Hospitalization, Other)
  Sender: FDA-Public Use
  Company Number: IT-AMGEN-ITASP2020168731

PATIENT

DRUGS (25)
  1. ADALIMUMAB [Suspect]
     Active Substance: ADALIMUMAB
     Indication: Rheumatoid arthritis
     Dosage: UNK
     Route: 065
  2. ADALIMUMAB [Suspect]
     Active Substance: ADALIMUMAB
     Indication: Ankylosing spondylitis
  3. ADALIMUMAB [Suspect]
     Active Substance: ADALIMUMAB
     Indication: Psoriatic arthropathy
  4. ADALIMUMAB [Suspect]
     Active Substance: ADALIMUMAB
     Indication: Axial spondyloarthritis
  5. ADALIMUMAB [Suspect]
     Active Substance: ADALIMUMAB
     Indication: Vasculitis
  6. ADALIMUMAB [Suspect]
     Active Substance: ADALIMUMAB
     Indication: Systemic lupus erythematosus
  7. ADALIMUMAB [Suspect]
     Active Substance: ADALIMUMAB
     Indication: Rheumatic disorder
  8. APREMILAST [Suspect]
     Active Substance: APREMILAST
     Indication: Rheumatoid arthritis
     Dosage: UNK
     Route: 065
  9. APREMILAST [Suspect]
     Active Substance: APREMILAST
     Indication: Psoriatic arthropathy
  10. APREMILAST [Suspect]
     Active Substance: APREMILAST
     Indication: Ankylosing spondylitis
  11. APREMILAST [Suspect]
     Active Substance: APREMILAST
     Indication: Axial spondyloarthritis
  12. APREMILAST [Suspect]
     Active Substance: APREMILAST
     Indication: Vasculitis
  13. APREMILAST [Suspect]
     Active Substance: APREMILAST
     Indication: Systemic lupus erythematosus
  14. APREMILAST [Suspect]
     Active Substance: APREMILAST
     Indication: Rheumatic disorder
  15. ETANERCEPT [Suspect]
     Active Substance: ETANERCEPT
     Indication: Rheumatoid arthritis
     Dosage: UNK
     Route: 065
  16. ETANERCEPT [Suspect]
     Active Substance: ETANERCEPT
     Indication: Psoriatic arthropathy
  17. ETANERCEPT [Suspect]
     Active Substance: ETANERCEPT
     Indication: Ankylosing spondylitis
  18. ETANERCEPT [Suspect]
     Active Substance: ETANERCEPT
     Indication: Axial spondyloarthritis
  19. ETANERCEPT [Suspect]
     Active Substance: ETANERCEPT
     Indication: Vasculitis
  20. ETANERCEPT [Suspect]
     Active Substance: ETANERCEPT
     Indication: Systemic lupus erythematosus
  21. ETANERCEPT [Suspect]
     Active Substance: ETANERCEPT
     Indication: Rheumatic disorder
  22. METHOTREXATE [Concomitant]
     Active Substance: METHOTREXATE
  23. HYDROXYCHLOROQUINE [Concomitant]
     Active Substance: HYDROXYCHLOROQUINE
  24. PREDNISONE [Concomitant]
     Active Substance: PREDNISONE
  25. SULFASALAZINE [Concomitant]
     Active Substance: SULFASALAZINE

REACTIONS (8)
  - Death [Fatal]
  - Rheumatoid arthritis [Unknown]
  - Psoriatic arthropathy [Unknown]
  - Neoplasm malignant [Unknown]
  - COVID-19 [Unknown]
  - Spondyloarthropathy [Unknown]
  - Rheumatic disorder [Unknown]
  - Suspected COVID-19 [Unknown]
